FAERS Safety Report 25723569 (Version 1)
Quarter: 2025Q3

REPORT INFORMATION
  Report Type: Spontaneous
  Country: EU (occurrence: EU)
  Receive Date: 20250825
  Receipt Date: 20250825
  Transmission Date: 20251021
  Serious: Yes (Other)
  Sender: AMERICAN REGENT
  Company Number: EU-AMERICAN REGENT INC-2025003204

PATIENT
  Age: 74 Year
  Sex: Female

DRUGS (5)
  1. VENOFER [Suspect]
     Active Substance: IRON SUCROSE
     Indication: Product used for unknown indication
     Route: 042
     Dates: start: 20210306, end: 20210306
  2. ALLOPURINOL [Concomitant]
     Active Substance: ALLOPURINOL
     Indication: Product used for unknown indication
     Route: 065
     Dates: start: 20210302, end: 20210319
  3. NEBIVOLOL [Concomitant]
     Active Substance: NEBIVOLOL
     Indication: Product used for unknown indication
     Route: 065
     Dates: start: 20210302, end: 20210319
  4. METFORMIN HYDROCHLORIDE [Concomitant]
     Active Substance: METFORMIN HYDROCHLORIDE
     Indication: Product used for unknown indication
     Route: 065
     Dates: start: 20210302, end: 20210319
  5. RAMIPRIL [Concomitant]
     Active Substance: RAMIPRIL
     Indication: Product used for unknown indication
     Route: 065
     Dates: start: 20210302, end: 20210319

REACTIONS (7)
  - Restlessness [Recovered/Resolved]
  - Tremor [Recovered/Resolved]
  - Chills [Recovered/Resolved]
  - Muscle spasms [Recovered/Resolved]
  - Dyspnoea [Recovered/Resolved]
  - Vomiting [Recovered/Resolved]
  - Hypertension [Recovered/Resolved]

NARRATIVE: CASE EVENT DATE: 20210306
